FAERS Safety Report 9684053 (Version 1)
Quarter: 2013Q4

REPORT INFORMATION
  Report Type: Spontaneous
  Country: FR (occurrence: FR)
  Receive Date: 20131112
  Receipt Date: 20131112
  Transmission Date: 20140711
  Serious: Yes (Hospitalization)
  Sender: FDA-Public Use
  Company Number: FR-BRISTOL-MYERS SQUIBB COMPANY-19753607

PATIENT
  Age: 49 Year
  Sex: Female

DRUGS (18)
  1. SPRYCEL (CML) TABS 50 MG [Suspect]
     Indication: CHRONIC MYELOID LEUKAEMIA
     Dates: start: 201207, end: 201208
  2. GLIVEC [Suspect]
     Dosage: 600 MG/D FROM 2009 TO 2010
     Route: 048
     Dates: start: 2007
  3. TASIGNA [Suspect]
     Dosage: 800 MG/D FROM AN UNSPECIFIED DATE TO SEPTEMBER 2011
     Dates: start: 201006
  4. CERUBIDINE [Suspect]
     Route: 042
     Dates: start: 201210
  5. CERUBIDINE [Suspect]
     Route: 042
     Dates: start: 201210
  6. ARACYTINE [Suspect]
     Dates: start: 201210, end: 201212
  7. ZAVEDOS [Suspect]
     Dates: start: 201212
  8. ENDOXAN [Suspect]
     Dates: start: 201303
  9. BUSILVEX [Suspect]
     Indication: ACUTE MYELOID LEUKAEMIA
     Dates: start: 201303
  10. NEORAL [Interacting]
     Dosage: 50 MG TWICE A DAY FROM 12-AUG-2013 TO 29-AUG-2013
     Route: 048
     Dates: start: 201303
  11. NOXAFIL [Interacting]
     Route: 048
     Dates: start: 201301, end: 201309
  12. ROVAMYCINE [Concomitant]
     Dosage: 1DF:3 MILLIONS IU
     Route: 048
     Dates: start: 201304
  13. ZELITREX [Concomitant]
     Route: 048
     Dates: start: 201304
  14. WELLVONE [Concomitant]
     Dosage: ADF:750 MG/5ML
     Route: 048
  15. MOPRAL [Concomitant]
     Dates: start: 201303
  16. LYRICA [Concomitant]
  17. SEROPLEX [Concomitant]
  18. LEXOMIL [Concomitant]
     Dosage: 1DF:0.5 UNITS NOS

REACTIONS (4)
  - Myocardial infarction [Recovering/Resolving]
  - Cardiac failure [Recovering/Resolving]
  - Pericardial effusion [Recovering/Resolving]
  - Aortic valve incompetence [Recovering/Resolving]
